FAERS Safety Report 6344535-3 (Version None)
Quarter: 2009Q3

REPORT INFORMATION
  Report Type: 
  Country: None (occurrence: None)
  Receive Date: 20090903
  Receipt Date: 20090817
  Transmission Date: 20100115
  Serious: Yes (Hospitalization)
  Sender: FDA-Public Use
  Company Number: 2008AL008829

PATIENT
  Age: 71 Year
  Sex: Female

DRUGS (9)
  1. DIGOXIN [Suspect]
     Indication: TACHYCARDIA
     Dosage: 0.25MG, DAILY, PO
     Route: 048
  2. VERAPAMIL [Concomitant]
  3. ASPIRIN [Concomitant]
  4. TRIAMTERENE [Concomitant]
  5. ALPRAZOLAM [Concomitant]
  6. ESTRADIOL [Concomitant]
  7. HYDROCHLOROTHIAZIDE [Concomitant]
  8. MAXZIDE [Concomitant]
  9. XANAX [Concomitant]

REACTIONS (6)
  - DIZZINESS [None]
  - DYSPNOEA [None]
  - ORTHOSTATIC HYPOTENSION [None]
  - PALPITATIONS [None]
  - PRESYNCOPE [None]
  - SINUS BRADYCARDIA [None]
